FAERS Safety Report 15145854 (Version 1)
Quarter: 2018Q3

REPORT INFORMATION
  Report Type: Spontaneous
  Country: GB (occurrence: GB)
  Receive Date: 20180714
  Receipt Date: 20180714
  Transmission Date: 20181010
  Serious: Yes (Other)
  Sender: FDA-Public Use
  Company Number: GB-TEVA-2018-GB-925789

PATIENT
  Age: 69 Year
  Sex: Female
  Weight: 86 kg

DRUGS (6)
  1. RABEPRAZOLE [Suspect]
     Active Substance: RABEPRAZOLE
     Route: 065
     Dates: start: 20180607
  2. ATENOLOL. [Concomitant]
     Active Substance: ATENOLOL
     Dosage: 1 DOSAGE FORMS DAILY;
     Dates: start: 20170927
  3. NATECAL D3 [Concomitant]
     Active Substance: CALCIUM CARBONATE\CHOLECALCIFEROL
     Dosage: 2?3 PER WEEK
     Dates: start: 20170927
  4. RANITIDINE. [Concomitant]
     Active Substance: RANITIDINE
     Dosage: 2 DOSAGE FORMS DAILY;
     Dates: start: 20180417, end: 20180517
  5. PANTOPRAZOLE [Concomitant]
     Active Substance: PANTOPRAZOLE
     Dosage: 1 DOSAGE FORMS DAILY;
     Dates: start: 20170927
  6. BENDROFLUMETHIAZIDE [Concomitant]
     Active Substance: BENDROFLUMETHIAZIDE
     Dosage: 1 DOSAGE FORMS DAILY;
     Dates: start: 20170927

REACTIONS (2)
  - Liver function test abnormal [Recovered/Resolved]
  - Malaise [Unknown]

NARRATIVE: CASE EVENT DATE: 20180607
